FAERS Safety Report 16051783 (Version 1)
Quarter: 2019Q1

REPORT INFORMATION
  Report Type: Spontaneous
  Country: US (occurrence: US)
  Receive Date: 20190308
  Receipt Date: 20190308
  Transmission Date: 20190418
  Serious: Yes (Other)
  Sender: FDA-Public Use
  Company Number: US-BAYER-2017-120163

PATIENT
  Age: 34 Year
  Sex: Female
  Weight: 59.42 kg

DRUGS (23)
  1. MIRENA [Suspect]
     Active Substance: LEVONORGESTREL
     Dosage: 20 MCG/24HR, CONT
     Route: 015
  2. LIDOCAINE. [Concomitant]
     Active Substance: LIDOCAINE
  3. MELOXICAM. [Concomitant]
     Active Substance: MELOXICAM
  4. FLUTICASONE. [Concomitant]
     Active Substance: FLUTICASONE
  5. DOCUSATE [Concomitant]
     Active Substance: DOCUSATE
  6. TRAMADOL. [Concomitant]
     Active Substance: TRAMADOL
  7. DULOXETINE. [Concomitant]
     Active Substance: DULOXETINE
  8. PAMPRIN [Concomitant]
     Active Substance: IBUPROFEN
  9. ESSURE [Suspect]
     Active Substance: DEVICE
     Indication: FEMALE STERILISATION
     Dosage: UNK
     Dates: start: 20130514, end: 20151120
  10. NAPROXEN. [Concomitant]
     Active Substance: NAPROXEN
  11. FLEXERIL [CEFIXIME] [Concomitant]
     Active Substance: CEFIXIME
  12. VENLAFAXINE [Concomitant]
     Active Substance: VENLAFAXINE HYDROCHLORIDE
  13. FAMOTIDINE. [Concomitant]
     Active Substance: FAMOTIDINE
  14. DEPO-PROVERA [Concomitant]
     Active Substance: MEDROXYPROGESTERONE ACETATE
     Indication: CONTRACEPTION
     Dosage: UNK
     Dates: end: 20151216
  15. MIRENA [Suspect]
     Active Substance: LEVONORGESTREL
  16. MIDOL [ACETYLSALICYLIC ACID] [Concomitant]
  17. FLUOCINONIDE. [Concomitant]
     Active Substance: FLUOCINONIDE
  18. SEROQUEL [Concomitant]
     Active Substance: QUETIAPINE FUMARATE
  19. MEDROXYPROGESTERONE [Concomitant]
     Active Substance: MEDROXYPROGESTERONE
  20. NORTRIPTYLINE [Concomitant]
     Active Substance: NORTRIPTYLINE
  21. ONDANSETRON [Concomitant]
     Active Substance: ONDANSETRON
  22. CYCLOBENZAPRINE. [Concomitant]
     Active Substance: CYCLOBENZAPRINE
  23. CLONAZEPAM. [Concomitant]
     Active Substance: CLONAZEPAM

REACTIONS (24)
  - Headache [Recovered/Resolved]
  - Depression [Recovering/Resolving]
  - Weight decreased [Unknown]
  - Dysuria [Recovered/Resolved]
  - Cystitis [Unknown]
  - Urinary tract infection [Unknown]
  - Anxiety [Unknown]
  - Post procedural haematoma [Unknown]
  - Dyspareunia [Recovered/Resolved]
  - Nausea [Unknown]
  - Genital haemorrhage [Unknown]
  - Mood swings [Unknown]
  - Pelvic pain [Recovered/Resolved]
  - Dysmenorrhoea [Recovered/Resolved]
  - Vaginal discharge [Unknown]
  - Abdominal pain [Recovered/Resolved]
  - Vaginal haemorrhage [Unknown]
  - Back pain [Recovered/Resolved]
  - Menorrhagia [Unknown]
  - Migraine [Recovered/Resolved]
  - Embedded device [Unknown]
  - Rash [Recovered/Resolved]
  - Female sexual dysfunction [Unknown]
  - Fatigue [Unknown]

NARRATIVE: CASE EVENT DATE: 2013
